FAERS Safety Report 9235941 (Version 1)
Quarter: 2013Q2

REPORT INFORMATION
  Report Type: Report from Study
  Country: CA (occurrence: CA)
  Receive Date: 20130417
  Receipt Date: 20130417
  Transmission Date: 20140414
  Serious: Yes (Other)
  Sender: FDA-Public Use
  Company Number: CA-UCBSA-074718

PATIENT
  Age: 26 Year
  Sex: Female

DRUGS (13)
  1. CIMZIA [Suspect]
     Indication: RHEUMATOID ARTHRITIS
     Route: 058
     Dates: start: 2013, end: 20130307
  2. CIMZIA [Suspect]
     Indication: RHEUMATOID ARTHRITIS
     Route: 058
     Dates: start: 2013, end: 20130207
  3. CIMZIA [Suspect]
     Indication: RHEUMATOID ARTHRITIS
     Route: 058
     Dates: start: 20120719, end: 20130103
  4. CIMZIA [Suspect]
     Indication: RHEUMATOID ARTHRITIS
     Route: 058
     Dates: start: 20120607, end: 20120705
  5. PLAQUENIL [Concomitant]
     Indication: RHEUMATOID ARTHRITIS
     Route: 048
     Dates: start: 2010
  6. PLAQUENIL [Concomitant]
     Indication: RHEUMATOID ARTHRITIS
     Route: 048
     Dates: start: 20120117
  7. CLONAZEPAM [Concomitant]
     Indication: DEPRESSION
     Dosage: AT BEDTIME
     Route: 048
  8. CLONAZEPAM [Concomitant]
     Indication: ANXIOLYTIC THERAPY
     Dosage: AT BEDTIME
     Route: 048
  9. ZOLOFT [Concomitant]
     Indication: DEPRESSION
     Route: 048
  10. ZOLOFT [Concomitant]
     Indication: ANXIETY DISORDER
     Route: 048
  11. TRAZODONE [Concomitant]
     Indication: DEPRESSION
     Route: 048
     Dates: start: 201212
  12. TRAZODONE [Concomitant]
     Indication: DEPRESSION
     Route: 048
  13. ATIVAN [Concomitant]
     Indication: ANXIETY
     Route: 048

REACTIONS (4)
  - Candida infection [Recovered/Resolved]
  - Colitis microscopic [Not Recovered/Not Resolved]
  - Nasopharyngitis [Recovered/Resolved]
  - Influenza [Recovering/Resolving]
